FAERS Safety Report 9542201 (Version 1)
Quarter: 2013Q3

REPORT INFORMATION
  Report Type: Spontaneous
  Country: US (occurrence: None)
  Receive Date: 20130918
  Receipt Date: 20130918
  Transmission Date: 20140515
  Serious: No
  Sender: FDA-Public Use
  Company Number: 2013CT000053

PATIENT
  Sex: Female

DRUGS (1)
  1. KORLYM [Suspect]
     Indication: BIPOLAR I DISORDER
     Dates: start: 201301, end: 2013

REACTIONS (1)
  - Depression [None]
